FAERS Safety Report 15366696 (Version 1)
Quarter: 2018Q3

REPORT INFORMATION
  Report Type: Spontaneous
  Country: US (occurrence: US)
  Receive Date: 20180902
  Receipt Date: 20180902
  Transmission Date: 20181010
  Serious: Yes (Life-Threatening, Disabling, Other)
  Sender: FDA-Public Use
  Company Number: None

PATIENT
  Age: 71 Year
  Sex: Male
  Weight: 81.9 kg

DRUGS (2)
  1. EMPAGLIFLOZIN 25 MG [Suspect]
     Active Substance: EMPAGLIFLOZIN
     Indication: BLOOD GLUCOSE INCREASED
     Dosage: ?          QUANTITY:1 TABLET(S);?
     Route: 048
     Dates: start: 20180822, end: 20180901
  2. PTSD MEDS AND DIABETICS [Concomitant]

REACTIONS (9)
  - Swelling face [None]
  - Pharyngeal oedema [None]
  - Penile odour [None]
  - Penile swelling [None]
  - Eye swelling [None]
  - Pain [None]
  - Pollakiuria [None]
  - Nasal congestion [None]
  - Hypersensitivity [None]

NARRATIVE: CASE EVENT DATE: 20180901
